FAERS Safety Report 11522925 (Version 2)
Quarter: 2015Q4

REPORT INFORMATION
  Report Type: Report from Study
  Country: US (occurrence: US)
  Receive Date: 20150918
  Receipt Date: 20151130
  Transmission Date: 20160304
  Serious: Yes (Hospitalization, Other)
  Sender: FDA-Public Use
  Company Number: US-BAXTER-2015BAX050033

PATIENT
  Age: 71 Year
  Sex: Female

DRUGS (42)
  1. VINCRISTINE [Suspect]
     Active Substance: VINCRISTINE
     Indication: DIFFUSE LARGE B-CELL LYMPHOMA
     Dosage: 2 UNIT NOT REPORTED
     Route: 065
     Dates: start: 20150527
  2. LORAZEPAM. [Concomitant]
     Active Substance: LORAZEPAM
     Indication: ANXIETY
     Route: 065
     Dates: start: 20150527
  3. LORAZEPAM. [Concomitant]
     Active Substance: LORAZEPAM
     Indication: NAUSEA
  4. OXYCODONE [Concomitant]
     Active Substance: OXYCODONE
     Indication: BACK PAIN
     Route: 065
     Dates: start: 20150531
  5. FOSAPREPITANT [Concomitant]
     Active Substance: FOSAPREPITANT
     Indication: PROPHYLAXIS OF NAUSEA AND VOMITING
     Route: 065
     Dates: start: 20150730, end: 20150730
  6. NORMAL SALINE [Concomitant]
     Active Substance: SODIUM CHLORIDE
     Route: 065
     Dates: start: 20150820, end: 20150820
  7. GDC-0199 (BCL-2 SELECTIVE INHIBITOR) [Suspect]
     Active Substance: VENETOCLAX
     Dosage: 600 UNIT NOT REPORTED
     Route: 065
     Dates: start: 20150829
  8. LEVOTHYROXINE. [Concomitant]
     Active Substance: LEVOTHYROXINE
     Indication: HYPOTHYROIDISM
     Route: 065
     Dates: start: 20150512
  9. PANTOPRAZOLE [Concomitant]
     Active Substance: PANTOPRAZOLE SODIUM
     Indication: PROPHYLAXIS
  10. ACETAMINOPHEN. [Concomitant]
     Active Substance: ACETAMINOPHEN
     Route: 065
     Dates: start: 20150820, end: 20150820
  11. DIPHENHYDRAMINE. [Concomitant]
     Active Substance: DIPHENHYDRAMINE
     Indication: PREMEDICATION
     Route: 065
     Dates: start: 20150730, end: 20150730
  12. GDC-0199 (BCL-2 SELECTIVE INHIBITOR) [Suspect]
     Active Substance: VENETOCLAX
     Dosage: 600 UNIT NOT REPORTED, RECEIVED MOST RECENT DOSE
     Route: 065
     Dates: start: 20150830
  13. OBINUTUZUMAB [Suspect]
     Active Substance: OBINUTUZUMAB
     Indication: DIFFUSE LARGE B-CELL LYMPHOMA
     Route: 065
     Dates: start: 20150527
  14. DOXORUBICIN [Suspect]
     Active Substance: DOXORUBICIN
     Dosage: 75 UNIT NOT REPORTED, RECEIVED MOST RECENT DOSE
     Route: 065
     Dates: start: 20150820
  15. FUROSEMIDE. [Concomitant]
     Active Substance: FUROSEMIDE
     Indication: OEDEMA
     Route: 065
     Dates: start: 20150512
  16. FOSAPREPITANT [Concomitant]
     Active Substance: FOSAPREPITANT
     Route: 065
     Dates: start: 20150820, end: 20150820
  17. GDC-0199 (BCL-2 SELECTIVE INHIBITOR) [Suspect]
     Active Substance: VENETOCLAX
     Indication: DIFFUSE LARGE B-CELL LYMPHOMA
     Dosage: 600 UNIT NOT REPORTED
     Route: 065
     Dates: start: 20150530
  18. PREDNISONE. [Suspect]
     Active Substance: PREDNISONE
     Indication: DIFFUSE LARGE B-CELL LYMPHOMA
     Dosage: 100 UNIT NOT REPORTED
     Route: 065
     Dates: start: 20150527
  19. SULFAMETHOXAZOLE/TRIMETHOPRIM [Concomitant]
     Active Substance: SULFAMETHOXAZOLE\TRIMETHOPRIM
     Indication: ANTIFUNGAL PROPHYLAXIS
     Route: 065
     Dates: start: 20150529
  20. ACYCLOVIR. [Concomitant]
     Active Substance: ACYCLOVIR
     Indication: ANTIVIRAL PROPHYLAXIS
     Dates: start: 20150529
  21. ACETAMINOPHEN. [Concomitant]
     Active Substance: ACETAMINOPHEN
     Indication: PREMEDICATION
     Route: 065
     Dates: start: 20150730, end: 20150730
  22. PALONOSETRON [Concomitant]
     Active Substance: PALONOSETRON
     Route: 065
     Dates: start: 20150820, end: 20150820
  23. OBINUTUZUMAB [Suspect]
     Active Substance: OBINUTUZUMAB
     Dosage: RECEIVED MOST RECENT DOSE
     Route: 065
     Dates: start: 20150820
  24. MAGNESIUM OXIDE. [Concomitant]
     Active Substance: MAGNESIUM OXIDE
     Indication: BLOOD MAGNESIUM DECREASED
     Route: 065
     Dates: start: 20150617
  25. DEXAMETHASONE. [Concomitant]
     Active Substance: DEXAMETHASONE
     Indication: PREMEDICATION
     Route: 065
     Dates: start: 20150730, end: 20150730
  26. PEGFILGRASTIM [Concomitant]
     Active Substance: PEGFILGRASTIM
     Route: 065
     Dates: start: 20150821, end: 20150821
  27. CYCLOPHOSPHAMIDE FOR INJECTION, USP [Suspect]
     Active Substance: CYCLOPHOSPHAMIDE
     Indication: DIFFUSE LARGE B-CELL LYMPHOMA
     Dosage: 1100 UNIT NOT REPORTED
     Route: 065
     Dates: start: 20150527
  28. CYCLOPHOSPHAMIDE FOR INJECTION, USP [Suspect]
     Active Substance: CYCLOPHOSPHAMIDE
     Dosage: 1100 UNIT NOT REPORTED, RECEIVED MOST RECENT DOSE
     Route: 065
     Dates: start: 20150820
  29. PREDNISONE. [Suspect]
     Active Substance: PREDNISONE
     Dosage: 100 UNIT NOT REPORTED, RECEIVED MOST RECENT DOSE
     Route: 065
     Dates: start: 20150824
  30. GLIMEPIRIDE. [Concomitant]
     Active Substance: GLIMEPIRIDE
     Indication: DIABETES MELLITUS
     Route: 065
     Dates: start: 20150512
  31. GABAPENTIN. [Concomitant]
     Active Substance: GABAPENTIN
     Indication: PAIN
     Route: 065
     Dates: start: 20150512
  32. ACYCLOVIR. [Concomitant]
     Active Substance: ACYCLOVIR
     Dosage: DOSE INCREASED
     Dates: start: 20150830
  33. ONDANSETRON [Concomitant]
     Active Substance: ONDANSETRON
     Indication: NAUSEA
     Route: 065
     Dates: start: 20150531
  34. DEXAMETHASONE. [Concomitant]
     Active Substance: DEXAMETHASONE
     Route: 065
     Dates: start: 20150820, end: 20150820
  35. PALONOSETRON [Concomitant]
     Active Substance: PALONOSETRON
     Indication: PROPHYLAXIS OF NAUSEA AND VOMITING
     Route: 065
     Dates: start: 20150730, end: 20150730
  36. NORMAL SALINE [Concomitant]
     Active Substance: SODIUM CHLORIDE
     Indication: FLUID REPLACEMENT
     Route: 065
     Dates: start: 20150730, end: 20150730
  37. PEGFILGRASTIM [Concomitant]
     Active Substance: PEGFILGRASTIM
     Indication: FEBRILE NEUTROPENIA
     Route: 065
     Dates: start: 20150731, end: 20150731
  38. DOXORUBICIN [Suspect]
     Active Substance: DOXORUBICIN
     Indication: DIFFUSE LARGE B-CELL LYMPHOMA
     Dosage: 75 UNIT NOT REPORTED
     Route: 065
     Dates: start: 20150527
  39. VINCRISTINE [Suspect]
     Active Substance: VINCRISTINE
     Dosage: 2 UNIT NOT REPORTED, RECEIVED MOST RECENT DOSE
     Route: 065
     Dates: start: 20150820
  40. METFORMIN [Concomitant]
     Active Substance: METFORMIN HYDROCHLORIDE
     Indication: DIABETES MELLITUS
     Route: 065
     Dates: start: 20150512
  41. PANTOPRAZOLE [Concomitant]
     Active Substance: PANTOPRAZOLE SODIUM
     Indication: GASTROOESOPHAGEAL REFLUX DISEASE
     Route: 065
     Dates: start: 20150526
  42. DIPHENHYDRAMINE. [Concomitant]
     Active Substance: DIPHENHYDRAMINE
     Route: 065
     Dates: start: 20150820, end: 20150820

REACTIONS (2)
  - Dysphagia [Recovered/Resolved]
  - Neutropenia [Unknown]

NARRATIVE: CASE EVENT DATE: 20150829
